FAERS Safety Report 10010708 (Version 2)
Quarter: 2014Q1

REPORT INFORMATION
  Report Type: Spontaneous
  Country: JP (occurrence: JP)
  Receive Date: 20140314
  Receipt Date: 20140321
  Transmission Date: 20141002
  Serious: Yes (Other)
  Sender: FDA-Public Use
  Company Number: JP-ROCHE-1361521

PATIENT
  Age: 61 Year
  Sex: Female

DRUGS (17)
  1. AVASTIN [Suspect]
     Indication: BREAST CANCER METASTATIC
     Route: 041
     Dates: start: 20130906, end: 20130906
  2. AVASTIN [Suspect]
     Indication: BREAST CANCER METASTATIC
     Route: 041
     Dates: start: 20130920, end: 20130920
  3. AVASTIN [Suspect]
     Indication: BREAST CANCER METASTATIC
     Route: 041
     Dates: start: 20140110
  4. PACLITAXEL [Concomitant]
     Indication: BREAST CANCER METASTATIC
     Route: 041
  5. CARBOPLATIN [Concomitant]
     Indication: BREAST CANCER METASTATIC
     Route: 041
  6. EMEND [Concomitant]
     Dosage: DOSAGE IS UNCERTAIN.
     Route: 048
  7. FLUVASTATIN [Concomitant]
     Dosage: DOSAGE IS UNCERTAIN.
     Route: 048
  8. DEPAS [Concomitant]
     Dosage: DOSAGE IS UNCERTAIN.
     Route: 048
  9. JZOLOFT [Concomitant]
     Dosage: DOSAGE IS UNCERTAIN.
     Route: 048
  10. MEILAX [Concomitant]
     Dosage: DOSAGE IS UNCERTAIN.
     Route: 048
  11. ALLEGRA [Concomitant]
     Dosage: DOSAGE IS UNCERTAIN.
     Route: 048
  12. PROTECADIN [Concomitant]
     Dosage: DOSAGE IS UNCERTAIN.
     Route: 048
  13. EVOXAC [Concomitant]
     Dosage: DOSAGE IS UNCERTAIN.
     Route: 048
  14. ATARAX-P [Concomitant]
     Dosage: DOSAGE IS UNCERTAIN.
     Route: 065
  15. TOUGHMAC-E [Concomitant]
     Dosage: DOSAGE IS UNCERTAIN.
     Route: 048
  16. CEPHADOL [Concomitant]
     Dosage: DOSAGE IS UNCERTAIN.
     Route: 048
  17. ADETPHOS [Concomitant]
     Dosage: DOSAGE IS UNCERTAIN.
     Route: 048

REACTIONS (3)
  - Proteinuria [Unknown]
  - Hypertension [Unknown]
  - Vitreous haemorrhage [Recovered/Resolved]
